FAERS Safety Report 19880167 (Version 1)
Quarter: 2021Q3

REPORT INFORMATION
  Report Type: Report from Study
  Country: None (occurrence: RO)
  Receive Date: 20210925
  Receipt Date: 20210925
  Transmission Date: 20211014
  Serious: Yes (Hospitalization, Other)
  Sender: FDA-Public Use
  Company Number: RO-ABBVIE-21K-135-4092647-00

PATIENT
  Age: 54 Year
  Sex: Female

DRUGS (4)
  1. NOLIPREL [Concomitant]
     Indication: CARDIAC DISORDER
     Route: 048
     Dates: start: 202106
  2. EXVIERA [Suspect]
     Active Substance: DASABUVIR
     Indication: CHRONIC HEPATITIS C
     Route: 048
     Dates: start: 20201016, end: 20201210
  3. VIEKIRAX [Suspect]
     Active Substance: OMBITASVIR\PARITAPREVIR\RITONAVIR
     Indication: CHRONIC HEPATITIS C
     Route: 048
     Dates: start: 20201016, end: 20201210
  4. BISOTENS [Concomitant]
     Indication: CARDIAC DISORDER
     Route: 048
     Dates: start: 202106

REACTIONS (1)
  - Cervix carcinoma [Not Recovered/Not Resolved]

NARRATIVE: CASE EVENT DATE: 202105
